FAERS Safety Report 18990799 (Version 2)
Quarter: 2021Q2

REPORT INFORMATION
  Report Type: Spontaneous
  Country: JP (occurrence: JP)
  Receive Date: 20210310
  Receipt Date: 20210412
  Transmission Date: 20210717
  Serious: Yes (Death, Hospitalization, Other)
  Sender: FDA-Public Use
  Company Number: NVSJ2021JP001479

PATIENT
  Age: 73 Year
  Sex: Male
  Weight: 55 kg

DRUGS (14)
  1. PREDONINE [Concomitant]
     Active Substance: PREDNISOLONE
     Indication: PRODUCT USED FOR UNKNOWN INDICATION
     Dosage: 10MG, QD AFTER BREAKFAST FOR 7DAYS
     Route: 048
     Dates: start: 20210121
  2. DIART [Concomitant]
     Active Substance: AZOSEMIDE
     Indication: PRODUCT USED FOR UNKNOWN INDICATION
     Dosage: 30 MG, QD  AFTER BREAKFAST FOR 7DAYS
     Route: 048
     Dates: start: 20210121
  3. MIYA?BM [Concomitant]
     Active Substance: CLOSTRIDIUM BUTYRICUM SPORES STRAIN M-55
     Indication: PRODUCT USED FOR UNKNOWN INDICATION
     Dosage: 40 MG, TID AFTER MEALS FOR 7DAYS
     Route: 048
     Dates: start: 20210121
  4. E KEPPRA [Concomitant]
     Active Substance: LEVETIRACETAM
     Indication: PRODUCT USED FOR UNKNOWN INDICATION
     Dosage: 500 MG, BID AFTER BREAKFAST AND DINNER FOR 7DAYS
     Route: 048
     Dates: start: 20210121
  5. CALONAL [Concomitant]
     Active Substance: ACETAMINOPHEN
     Indication: PRODUCT USED FOR UNKNOWN INDICATION
     Dosage: 400 MG, TID AFTER BREAKFAST AND LUNCH, BEFORE SLEEP FOR 7DAYS
     Route: 048
     Dates: start: 20210121
  6. AMITIZA [Concomitant]
     Active Substance: LUBIPROSTONE
     Indication: PRODUCT USED FOR UNKNOWN INDICATION
     Dosage: 24 UG, QD BEFORE SLEEP FOR 7DAYS
     Route: 048
     Dates: start: 20210121
  7. BAKTAR [Concomitant]
     Active Substance: SULFAMETHOXAZOLE\TRIMETHOPRIM
     Indication: PRODUCT USED FOR UNKNOWN INDICATION
     Dosage: 1DF QD AFTER BREAKFAST ON  MONDAY WEDNESDAY FRIDAY
     Route: 048
     Dates: start: 20210121
  8. MUCODYNE [Concomitant]
     Active Substance: CARBOCYSTEINE
     Indication: PRODUCT USED FOR UNKNOWN INDICATION
     Dosage: 1 G, TID AFTER MEALS FOR 7DAYS
     Route: 048
     Dates: start: 20210121
  9. GLUCONSAN K [Concomitant]
     Active Substance: POTASSIUM GLUCONATE
     Indication: PRODUCT USED FOR UNKNOWN INDICATION
     Dosage: 1 G, TID AFTER MEALS FOR 7DAYS
     Route: 065
     Dates: start: 20210121
  10. AMLODIPINE [Concomitant]
     Active Substance: AMLODIPINE BESYLATE
     Indication: PRODUCT USED FOR UNKNOWN INDICATION
     Dosage: 2.5 MG, BID AFTER  BREAKFAST AND DINNER FOR 7DAYS
     Route: 048
  11. TAKECAB [Concomitant]
     Active Substance: VONOPRAZAN FUMARATE
     Indication: PRODUCT USED FOR UNKNOWN INDICATION
     Dosage: 20 MG, QD AFTER BREAKFAST FOR 7DAYS
     Route: 048
     Dates: start: 20210121
  12. NEORAL [Suspect]
     Active Substance: CYCLOSPORINE
     Indication: KIDNEY TRANSPLANT REJECTION
     Dosage: 120 MG
     Route: 048
  13. NEORAL [Suspect]
     Active Substance: CYCLOSPORINE
     Dosage: 50 MG AND 10 MG ONCE  BID AFTER BREAKFAST AND DINNER FOR 7DAYS
     Route: 048
     Dates: start: 20210121
  14. BISONO [Concomitant]
     Active Substance: BISOPROLOL
     Indication: PRODUCT USED FOR UNKNOWN INDICATION
     Dosage: 4 MG, QD FOR 7DAYS
     Route: 062
     Dates: start: 20210121

REACTIONS (11)
  - Renal impairment [Unknown]
  - Pneumonia aspiration [Fatal]
  - Brain neoplasm [Fatal]
  - Dehydration [Recovered/Resolved]
  - Intentional dose omission [Unknown]
  - Feeding disorder [Unknown]
  - Dysphagia [Fatal]
  - Cerebral haemorrhage [Unknown]
  - Vomiting [Fatal]
  - Hypoxia [Fatal]
  - Tachycardia [Unknown]

NARRATIVE: CASE EVENT DATE: 20201007
